FAERS Safety Report 9083713 (Version 2)
Quarter: 2013Q1

REPORT INFORMATION
  Report Type: Spontaneous
  Country: US (occurrence: US)
  Receive Date: 20130218
  Receipt Date: 20130311
  Transmission Date: 20140127
  Serious: Yes (Death)
  Sender: FDA-Public Use
  Company Number: PHEH2013US003927

PATIENT
  Age: 74 Year
  Sex: Female
  Weight: 149 kg

DRUGS (1)
  1. RECLAST [Suspect]
     Indication: SENILE OSTEOPOROSIS
     Dosage: 5 MG, UNK
     Route: 042
     Dates: start: 201201

REACTIONS (1)
  - Death [Fatal]
